FAERS Safety Report 15729962 (Version 1)
Quarter: 2018Q4

REPORT INFORMATION
  Report Type: Spontaneous
  Country: US (occurrence: US)
  Receive Date: 20181216
  Receipt Date: 20181216
  Transmission Date: 20190205
  Serious: Yes (Life-Threatening, Hospitalization, Other)
  Sender: FDA-Public Use
  Company Number: None

PATIENT
  Age: 70 Year
  Sex: Female
  Weight: 83.7 kg

DRUGS (17)
  1. AMLODIPINE [Concomitant]
     Active Substance: AMLODIPINE BESYLATE
  2. VITAMIN D3 [Concomitant]
     Active Substance: CHOLECALCIFEROL
  3. ASPIRIN. [Concomitant]
     Active Substance: ASPIRIN
  4. METFORMIN [Concomitant]
     Active Substance: METFORMIN HYDROCHLORIDE
  5. OMEPRAZOLE. [Concomitant]
     Active Substance: OMEPRAZOLE
  6. LISINOPRIL 40 MG. TABLET1 TABLET DAILY. MFR.LUPON, DMF/DKB/DKB/DKB/DKB [Suspect]
     Active Substance: LISINOPRIL
     Indication: HYPERTENSION
     Dosage: ?          QUANTITY:90 TABLET(S);?
     Route: 048
  7. CYCLOBENZAPRINE. [Concomitant]
     Active Substance: CYCLOBENZAPRINE
  8. ASPIRIN. [Concomitant]
     Active Substance: ASPIRIN
  9. EFFEXOR XR [Concomitant]
     Active Substance: VENLAFAXINE HYDROCHLORIDE
  10. RESPIMAT [Concomitant]
  11. PREGABALIN. [Concomitant]
     Active Substance: PREGABALIN
  12. ZETIA [Concomitant]
     Active Substance: EZETIMIBE
  13. ZLONAZEPAM [Concomitant]
  14. LYRICA [Concomitant]
     Active Substance: PREGABALIN
  15. TRAMADOL. [Concomitant]
     Active Substance: TRAMADOL
  16. TRAZODONE [Concomitant]
     Active Substance: TRAZODONE HYDROCHLORIDE
  17. INCRUSE ELLIPTA [Concomitant]
     Active Substance: UMECLIDINIUM BROMIDE

REACTIONS (3)
  - Heart rate increased [None]
  - Blood pressure systolic increased [None]
  - Angioedema [None]

NARRATIVE: CASE EVENT DATE: 20181214
